FAERS Safety Report 19251200 (Version 1)
Quarter: 2021Q2

REPORT INFORMATION
  Report Type: Spontaneous
  Country: RU (occurrence: RU)
  Receive Date: 20210512
  Receipt Date: 20210512
  Transmission Date: 20210717
  Serious: Yes (Other)
  Sender: FDA-Public Use
  Company Number: NVSC2021RU098075

PATIENT
  Age: 69 Year
  Sex: Male
  Weight: 81 kg

DRUGS (2)
  1. MEROPENEM. [Concomitant]
     Active Substance: MEROPENEM
     Indication: SKIN BACTERIAL INFECTION
     Dosage: 1 G, TID
     Route: 042
     Dates: start: 20210413, end: 20210427
  2. EDICIN [Suspect]
     Active Substance: VANCOMYCIN HYDROCHLORIDE
     Indication: SKIN BACTERIAL INFECTION
     Dosage: 1 G, BID
     Route: 042
     Dates: start: 20210423, end: 20210423

REACTIONS (1)
  - Bronchospasm [Recovered/Resolved with Sequelae]

NARRATIVE: CASE EVENT DATE: 20210423
